FAERS Safety Report 18464214 (Version 1)
Quarter: 2020Q4

REPORT INFORMATION
  Report Type: Spontaneous
  Country: US (occurrence: US)
  Receive Date: 20201104
  Receipt Date: 20201104
  Transmission Date: 20210114
  Serious: Yes (Other)
  Sender: FDA-Public Use
  Company Number: US-PFIZER INC-2020426591

PATIENT
  Age: 66 Year
  Sex: Female

DRUGS (1)
  1. LYRICA [Suspect]
     Active Substance: PREGABALIN
     Dosage: 150 MG, DAILY (50 MG 1 EVERY DAY BEFORE NOON AND 2 EVERY NIGHT AT BEDTIME)
     Route: 048

REACTIONS (5)
  - Hyperglycaemia [Unknown]
  - Restless legs syndrome [Unknown]
  - Neuropathy peripheral [Unknown]
  - Paraesthesia [Unknown]
  - Condition aggravated [Unknown]
